FAERS Safety Report 8524384-8 (Version None)
Quarter: 2012Q2

REPORT INFORMATION
  Report Type: 
  Country: None (occurrence: None)
  Receive Date: 20120406
  Receipt Date: 20110623
  Transmission Date: 20120825
  Serious: Yes (Other)
  Sender: FDA-Public Use
  Company Number: US-2011-10435

PATIENT
  Age: 53 Year
  Sex: Female

DRUGS (6)
  1. METHOTREXATE SODIUM [Concomitant]
  2. TACROLIMUS [Concomitant]
  3. FLUDARABINE PHOSPHATE [Suspect]
     Indication: STEM CELL TRANSPLANT
     Dosage: 40 MG/M2, DAILY DOSE
  4. G-CSF (G-CSF) [Concomitant]
  5. BUSULFEX [Suspect]
     Indication: STEM CELL TRANSPLANT
     Dosage: , INTRAVENOUS
     Route: 042
  6. ANTIBIOTICS [Concomitant]

REACTIONS (1)
  - GRAFT VERSUS HOST DISEASE [None]
